FAERS Safety Report 7949478 (Version 2)
Quarter: 2014Q1

REPORT INFORMATION
  Report Type: Spontaneous
  Country: US (occurrence: None)
  Receive Date: 20110302
  Receipt Date: 20140306
  Transmission Date: 20141002
  Serious: Yes (Other)
  Sender: FDA-Public Use
  Company Number: 163-21880-06121097

PATIENT
  Age: 55 Year
  Sex: Male

DRUGS (12)
  1. REVLIMID [Suspect]
     Indication: PLASMA CELL MYELOMA
     Dosage: 25 MG, 21 IN 21 D, PO
     Route: 048
     Dates: start: 20061124
  2. LISINOPRIL (LISINOPRIL) [Concomitant]
  3. ALBUTEROL SULFATE (SALBUTAMOL SULFATE) [Concomitant]
  4. DEXAMETHASONE (DEXAMETHASONE) [Concomitant]
  5. FLINTSTONES COMPLEX (MUTIVITAMINS) [Concomitant]
  6. WARFARIN SODIUM (WARFARIN SODIUM) [Concomitant]
  7. FLUCONAZOLE (FLUCONAZOLE) [Concomitant]
  8. ACYCLOVIR (ACICLOVIR) (ACICLOVIR) [Concomitant]
  9. DAPSONE (DAPSONE) [Concomitant]
  10. XARELTO (RIVAROXABAN) [Concomitant]
  11. CALCIUM (CALCIUM) [Concomitant]
  12. VITAMIN B12 (CYANOCOBALAMIN) [Concomitant]

REACTIONS (7)
  - Hypersensitivity [None]
  - Swelling [None]
  - Rash erythematous [None]
  - Pruritus [None]
  - Periorbital oedema [None]
  - Urticaria [None]
  - Abdominal distension [None]
